FAERS Safety Report 9295259 (Version 1)
Quarter: 2013Q2

REPORT INFORMATION
  Report Type: Report from Study
  Country: DE (occurrence: DE)
  Receive Date: 20130517
  Receipt Date: 20130517
  Transmission Date: 20140414
  Serious: Yes (Hospitalization)
  Sender: FDA-Public Use
  Company Number: PHHY2012DE082956

PATIENT
  Age: 59 Year
  Sex: Female

DRUGS (1)
  1. TASIGNA [Suspect]
     Indication: CHRONIC MYELOID LEUKAEMIA
     Dosage: 300 MG, BID
     Route: 048
     Dates: start: 200902

REACTIONS (5)
  - Peripheral arterial occlusive disease [Recovered/Resolved]
  - Peripheral artery stenosis [Recovered/Resolved]
  - Inflammation [Unknown]
  - Peripheral vascular disorder [Unknown]
  - Nausea [Unknown]
